FAERS Safety Report 10867623 (Version 1)
Quarter: 2015Q1

REPORT INFORMATION
  Report Type: Spontaneous
  Country: US (occurrence: US)
  Receive Date: 20150225
  Receipt Date: 20150225
  Transmission Date: 20150721
  Serious: Yes (Hospitalization)
  Sender: FDA-Public Use
  Company Number: US-MYLANLABS-2015M1006071

PATIENT

DRUGS (2)
  1. PROMETHAZINE [Suspect]
     Active Substance: PROMETHAZINE\PROMETHAZINE HYDROCHLORIDE
     Dosage: UNK
     Route: 042
  2. PROMETHAZINE [Suspect]
     Active Substance: PROMETHAZINE\PROMETHAZINE HYDROCHLORIDE
     Dosage: UNK
     Route: 065

REACTIONS (11)
  - Agitation [Recovering/Resolving]
  - Hallucination, visual [Recovering/Resolving]
  - Pyrexia [Recovering/Resolving]
  - Dysarthria [Recovered/Resolved]
  - Nystagmus [Recovering/Resolving]
  - Toxicity to various agents [Recovering/Resolving]
  - Ataxia [Recovering/Resolving]
  - Overdose [Recovering/Resolving]
  - Cerebellar syndrome [Recovering/Resolving]
  - Confusional state [Recovered/Resolved]
  - Dyskinesia [Recovering/Resolving]
